FAERS Safety Report 7545348-7 (Version None)
Quarter: 2011Q2

REPORT INFORMATION
  Report Type: 
  Country: None (occurrence: None)
  Receive Date: 20110607
  Receipt Date: 20110531
  Transmission Date: 20111010
  Serious: Yes (Hospitalization)
  Sender: FDA-Public Use
  Company Number: US-2011-10166

PATIENT
  Age: 53 Year
  Sex: Female

DRUGS (1)
  1. SAMSCA [Suspect]
     Indication: RENAL DISORDER
     Dosage: 15 MG MILLIGRAM(S), DAILY DOSE, ORAL
     Route: 048
     Dates: start: 20100801

REACTIONS (2)
  - BLOOD SODIUM DECREASED [None]
  - INCORRECT STORAGE OF DRUG [None]
